FAERS Safety Report 9456074 (Version 1)
Quarter: 2013Q3

REPORT INFORMATION
  Report Type: Spontaneous
  Country: GB (occurrence: None)
  Receive Date: 20130808
  Receipt Date: 20130808
  Transmission Date: 20140515
  Serious: Yes (Other)
  Sender: FDA-Public Use
  Company Number: AUR-APL-2013-06461

PATIENT
  Age: 85 Year
  Sex: Female
  Weight: 53 kg

DRUGS (2)
  1. RISPERIDONE [Suspect]
     Indication: AGGRESSION
     Route: 048
     Dates: end: 20130719
  2. PARACETAMOL (PARACETAMOL) [Concomitant]

REACTIONS (2)
  - Electrocardiogram QT prolonged [None]
  - Incorrect drug administration duration [None]
